FAERS Safety Report 9681930 (Version 2)
Quarter: 2013Q4

REPORT INFORMATION
  Report Type: Spontaneous
  Country: FR (occurrence: FR)
  Receive Date: 20131111
  Receipt Date: 20131112
  Transmission Date: 20140711
  Serious: Yes (Hospitalization)
  Sender: FDA-Public Use
  Company Number: FR-TEVA-441986ISR

PATIENT
  Age: 51 Year
  Sex: Female

DRUGS (1)
  1. DIAZEPAM RATIOPHARM 10 MG [Suspect]
     Dosage: 10 MILLIGRAM DAILY;

REACTIONS (1)
  - Panic attack [Not Recovered/Not Resolved]
